FAERS Safety Report 18594676 (Version 1)
Quarter: 2020Q4

REPORT INFORMATION
  Report Type: Spontaneous
  Country: US (occurrence: US)
  Receive Date: 20201208
  Receipt Date: 20201208
  Transmission Date: 20210114
  Serious: Yes (Other)
  Sender: FDA-Public Use
  Company Number: None

PATIENT
  Age: 73 Year
  Sex: Female
  Weight: 65.7 kg

DRUGS (18)
  1. DYMISTA [Concomitant]
     Active Substance: AZELASTINE HYDROCHLORIDE\FLUTICASONE PROPIONATE
  2. NEXIUM [Concomitant]
     Active Substance: ESOMEPRAZOLE MAGNESIUM
  3. DIPHENHYDRAMINE. [Concomitant]
     Active Substance: DIPHENHYDRAMINE
  4. MEGESTROL [Concomitant]
     Active Substance: MEGESTROL
  5. SUTENT [Suspect]
     Active Substance: SUNITINIB MALATE
     Indication: NEOPLASM MALIGNANT
     Route: 048
     Dates: start: 20201123, end: 20201205
  6. SUTENT [Suspect]
     Active Substance: SUNITINIB MALATE
     Indication: IRON DEFICIENCY ANAEMIA
     Route: 048
     Dates: start: 20201123, end: 20201205
  7. LOPERAMIDE [Concomitant]
     Active Substance: LOPERAMIDE
  8. ENTRESTO [Concomitant]
     Active Substance: SACUBITRIL\VALSARTAN
  9. TYLENOL [Concomitant]
     Active Substance: ACETAMINOPHEN
  10. BREO ELLIPTA [Concomitant]
     Active Substance: FLUTICASONE FUROATE\VILANTEROL TRIFENATATE
  11. CARVEDILOL. [Concomitant]
     Active Substance: CARVEDILOL
  12. ASPIRIN. [Concomitant]
     Active Substance: ASPIRIN
  13. ALBUTEROL HFA [Concomitant]
     Active Substance: ALBUTEROL SULFATE
  14. ATORVASTATIN [Concomitant]
     Active Substance: ATORVASTATIN
  15. PREDNISONE. [Concomitant]
     Active Substance: PREDNISONE
  16. MAGNEIUM OXIDE [Concomitant]
  17. ONDANSETRON [Concomitant]
     Active Substance: ONDANSETRON
  18. NORCO [Concomitant]
     Active Substance: ACETAMINOPHEN\HYDROCODONE BITARTRATE

REACTIONS (4)
  - Dyspnoea [None]
  - Nausea [None]
  - Diarrhoea [None]
  - Asthenia [None]

NARRATIVE: CASE EVENT DATE: 20201208
